FAERS Safety Report 10831302 (Version 1)
Quarter: 2015Q1

REPORT INFORMATION
  Report Type: Report from Study
  Country: US (occurrence: US)
  Receive Date: 20150219
  Receipt Date: 20150219
  Transmission Date: 20150721
  Serious: No
  Sender: FDA-Public Use
  Company Number: US-ABBVIE-14P-163-1192624-00

PATIENT
  Age: 50 Year
  Sex: Female

DRUGS (2)
  1. WARFARIN [Concomitant]
     Active Substance: WARFARIN
     Indication: PRODUCT USED FOR UNKNOWN INDICATION
  2. HUMIRA [Suspect]
     Active Substance: ADALIMUMAB
     Indication: CROHN^S DISEASE
     Route: 058
     Dates: start: 20131216

REACTIONS (3)
  - Rash papular [Unknown]
  - Pyrexia [Unknown]
  - Urticaria [Unknown]

NARRATIVE: CASE EVENT DATE: 20140114
